FAERS Safety Report 4751003-9 (Version None)
Quarter: 2005Q3

REPORT INFORMATION
  Report Type: 
  Country: None (occurrence: None)
  Receive Date: 20050824
  Receipt Date: 20050822
  Transmission Date: 20060218
  Serious: Yes (Death)
  Sender: FDA-Public Use
  Company Number: BR-BOEHRINGER INGELHEIM PHARMACEUTICALS, INC.-2005-BP-14531BR

PATIENT
  Age: 67 Year
  Sex: Male

DRUGS (2)
  1. SPIRIVA [Suspect]
     Indication: BRONCHITIS
     Route: 055
     Dates: start: 20041001, end: 20050725
  2. SPIRIVA [Suspect]
     Indication: EMPHYSEMA

REACTIONS (2)
  - MENINGITIS [None]
  - SEPTIC SHOCK [None]
